FAERS Safety Report 17752494 (Version 1)
Quarter: 2020Q2

REPORT INFORMATION
  Report Type: Spontaneous
  Country: ES (occurrence: ES)
  Receive Date: 20200506
  Receipt Date: 20200506
  Transmission Date: 20200714
  Serious: Yes (Death)
  Sender: FDA-Public Use
  Company Number: ES-ELI_LILLY_AND_COMPANY-ES202005000263

PATIENT
  Age: 71 Year
  Sex: Male

DRUGS (2)
  1. BARICITINIB [Suspect]
     Active Substance: BARICITINIB
     Indication: CORONAVIRUS INFECTION
     Dosage: 4 MG DIA
     Route: 048
     Dates: start: 20200409, end: 20200412
  2. BARICITINIB [Suspect]
     Active Substance: BARICITINIB
     Indication: PNEUMONIA

REACTIONS (4)
  - Acute kidney injury [Fatal]
  - Hepatic failure [Fatal]
  - Off label use [Unknown]
  - Pulmonary embolism [Fatal]

NARRATIVE: CASE EVENT DATE: 20200411
